FAERS Safety Report 15484684 (Version 2)
Quarter: 2018Q4

REPORT INFORMATION
  Report Type: Spontaneous
  Country: US (occurrence: US)
  Receive Date: 20181010
  Receipt Date: 20181102
  Transmission Date: 20190205
  Serious: No
  Sender: FDA-Public Use
  Company Number: US-GLAXOSMITHKLINE-US2018181759

PATIENT
  Sex: Female

DRUGS (1)
  1. BREO ELLIPTA [Suspect]
     Active Substance: FLUTICASONE FUROATE\VILANTEROL TRIFENATATE
     Indication: ASTHMA
     Dosage: 1 PUFF(S), QD
     Route: 055

REACTIONS (7)
  - Dyspnoea exertional [Unknown]
  - Expired product administered [Unknown]
  - Drug effect decreased [Unknown]
  - Overdose [Unknown]
  - Product complaint [Unknown]
  - Dyspnoea [Unknown]
  - Product storage error [Unknown]
